FAERS Safety Report 10387475 (Version 1)
Quarter: 2014Q3

REPORT INFORMATION
  Report Type: Spontaneous
  Country: US (occurrence: US)
  Receive Date: 20140815
  Receipt Date: 20140815
  Transmission Date: 20150326
  Serious: No
  Sender: FDA-Public Use
  Company Number: US-TARO-2013P1018799

PATIENT
  Age: 69 Year
  Sex: Male

DRUGS (1)
  1. LAMISIL [Suspect]
     Active Substance: TERBINAFINE HYDROCHLORIDE
     Dosage: BID

REACTIONS (2)
  - Drug ineffective [Recovering/Resolving]
  - Skin fissures [Recovering/Resolving]
